FAERS Safety Report 9917312 (Version 4)
Quarter: 2014Q1

REPORT INFORMATION
  Report Type: Spontaneous
  Country: US (occurrence: US)
  Receive Date: 20140221
  Receipt Date: 20140313
  Transmission Date: 20141002
  Serious: Yes (Hospitalization, Other)
  Sender: FDA-Public Use
  Company Number: US-BAXTER-2014BAX008567

PATIENT
  Age: 53 Year
  Sex: Male

DRUGS (2)
  1. DIANEAL LOW CALCIUM [Suspect]
     Indication: RENAL FAILURE CHRONIC
     Route: 033
  2. DIANEAL LOW CALCIUM [Suspect]
     Indication: RENAL FAILURE CHRONIC
     Route: 033

REACTIONS (6)
  - Myocardial infarction [Recovered/Resolved]
  - Infection [Recovering/Resolving]
  - Haemorrhage [Recovering/Resolving]
  - Fall [Recovered/Resolved with Sequelae]
  - Weight bearing difficulty [Unknown]
  - Coronary artery occlusion [Unknown]
